FAERS Safety Report 23377636 (Version 3)
Quarter: 2024Q1

REPORT INFORMATION
  Report Type: Report from Study
  Country: NL (occurrence: NL)
  Receive Date: 20240108
  Receipt Date: 20240118
  Transmission Date: 20240410
  Serious: Yes (Hospitalization)
  Sender: FDA-Public Use
  Company Number: NL-AstraZeneca-2024A001962

PATIENT
  Age: 7 Month
  Sex: Male
  Weight: 10.2 kg

DRUGS (1)
  1. SYNAGIS [Suspect]
     Active Substance: PALIVIZUMAB
     Indication: Product used for unknown indication
     Dosage: 15 MG/KG, MONTHLY
     Route: 030
     Dates: start: 20231013

REACTIONS (1)
  - Gastrooesophageal reflux disease [Not Recovered/Not Resolved]
